FAERS Safety Report 22621030 (Version 2)
Quarter: 2023Q2

REPORT INFORMATION
  Report Type: Spontaneous
  Country: FR (occurrence: FR)
  Receive Date: 20230620
  Receipt Date: 20230626
  Transmission Date: 20230721
  Serious: Yes (Hospitalization)
  Sender: FDA-Public Use
  Company Number: None

PATIENT
  Age: 14 Year
  Sex: Male

DRUGS (3)
  1. ABILIFY [Suspect]
     Active Substance: ARIPIPRAZOLE
     Indication: Schizophrenia
     Dosage: 5 MG DAILY HALF (1/2) TABLET
     Route: 048
     Dates: start: 20210720, end: 20211029
  2. CYAMEMAZINE [Suspect]
     Active Substance: CYAMEMAZINE
     Indication: Schizophrenia
     Dosage: 25 MG (1/2 TABLET IN THE MORNING + 1 TABLET IN THE EVENING)
     Route: 048
     Dates: start: 20210526, end: 20211029
  3. PROZAC [Concomitant]
     Active Substance: FLUOXETINE HYDROCHLORIDE
     Indication: Depression
     Dosage: 30 MG, QD
     Route: 048
     Dates: start: 20210819

REACTIONS (2)
  - Blood creatine phosphokinase increased [Recovered/Resolved]
  - Wrong technique in product usage process [Unknown]

NARRATIVE: CASE EVENT DATE: 20210720
